FAERS Safety Report 9940973 (Version 2)
Quarter: 2014Q2

REPORT INFORMATION
  Report Type: Spontaneous
  Country: US (occurrence: US)
  Receive Date: 20140303
  Receipt Date: 20140523
  Transmission Date: 20141212
  Serious: Yes (Other)
  Sender: FDA-Public Use
  Company Number: US-BRISTOL-MYERS SQUIBB COMPANY-20249785

PATIENT
  Age: 69 Year
  Sex: Male
  Weight: 94.33 kg

DRUGS (1)
  1. ABATACEPT SUBQ INJECTION 125MG/ML [Suspect]
     Indication: RHEUMATOID ARTHRITIS
     Route: 058
     Dates: end: 20140211

REACTIONS (3)
  - Upper limb fracture [Unknown]
  - Fall [Unknown]
  - Drug dose omission [Unknown]
